FAERS Safety Report 21328988 (Version 2)
Quarter: 2023Q4

REPORT INFORMATION
  Report Type: Spontaneous
  Country: US (occurrence: US)
  Receive Date: 20220913
  Receipt Date: 20231106
  Transmission Date: 20240110
  Serious: No
  Sender: FDA-Public Use
  Company Number: US-PFIZER INC-202101182805

PATIENT
  Age: 75 Year
  Sex: Female
  Weight: 57.15 kg

DRUGS (8)
  1. IBRANCE [Suspect]
     Active Substance: PALBOCICLIB
     Indication: Breast cancer
     Dosage: EVERY DAY FOR TWO WEEKS, LAY OFF OF IT FOR TWO WEEKS AND THEN TAKE IT AGAIN
  2. IBRANCE [Suspect]
     Active Substance: PALBOCICLIB
     Dosage: 75 MG, CYCLIC (ONE A DAY)
  3. IBRANCE [Suspect]
     Active Substance: PALBOCICLIB
     Dosage: USE AS DIRECTED
  4. IBRANCE [Suspect]
     Active Substance: PALBOCICLIB
     Dosage: DIRECTIONS/DOSING INSTRUCTIONS: 1 PO QD FOR 21 DAYS, THEN 7 DAYS OFF, RECYCLE Q21 DAYS
     Route: 048
  5. METOPROLOL [Concomitant]
     Active Substance: METOPROLOL
     Dosage: UNK
  6. LISINOPRIL [Concomitant]
     Active Substance: LISINOPRIL
     Dosage: UNK
  7. TRIAMTERENE [Concomitant]
     Active Substance: TRIAMTERENE
     Dosage: UNK
  8. METRONIDAZOLE [Concomitant]
     Active Substance: METRONIDAZOLE
     Dosage: 500 MG

REACTIONS (3)
  - Depressed mood [Unknown]
  - Product use issue [Unknown]
  - Off label use [Unknown]
